FAERS Safety Report 4555851-X (Version None)
Quarter: 2005Q1

REPORT INFORMATION
  Report Type: 
  Country: None (occurrence: None)
  Receive Date: 20050119
  Receipt Date: 20040423
  Transmission Date: 20050727
  Serious: Yes (Death)
  Sender: FDA-Public Use
  Company Number: PHEH2004US04593

PATIENT
  Age: 72 Year
  Sex: Female
  Weight: 57 kg

DRUGS (6)
  1. CLOZAPINE [Suspect]
     Indication: SCHIZOPHRENIA, UNDIFFERENTIATED TYPE
     Dosage: 200 MG, QHS
     Dates: start: 20030903, end: 20040101
  2. COMPAZINE [Suspect]
  3. PERCOCET [Suspect]
  4. PAXIL [Concomitant]
     Indication: DEPRESSION
     Dosage: 50 MG, QD (50MG QAM)
     Dates: start: 19970101
  5. ATIVAN [Concomitant]
     Indication: ANXIETY
     Dosage: 1 MG, TID
     Dates: start: 20000101
  6. RITALIN [Suspect]
     Indication: INSOMNIA
     Dosage: 20 MG, BID
     Dates: start: 19870101

REACTIONS (4)
  - DRUG ABUSER [None]
  - MOVEMENT DISORDER [None]
  - OVERDOSE [None]
  - SUDDEN DEATH [None]
